FAERS Safety Report 6211288-9 (Version None)
Quarter: 2009Q2

REPORT INFORMATION
  Report Type: 
  Country: None (occurrence: None)
  Receive Date: 20090602
  Receipt Date: 20090527
  Transmission Date: 20091009
  Serious: Yes (Other)
  Sender: FDA-Public Use
  Company Number: CN-JNJFOC-20090507072

PATIENT
  Age: 6 Month
  Sex: Female

DRUGS (4)
  1. CHILDREN'S MOTRIN [Suspect]
     Route: 048
  2. CHILDREN'S MOTRIN [Suspect]
     Indication: PYREXIA
     Route: 048
  3. RIBAVIRIN [Concomitant]
     Route: 042
  4. CEPHALOSPORINS AND RELATED SUBSTANCES [Concomitant]
     Route: 042

REACTIONS (1)
  - HYPOTHERMIA [None]
